FAERS Safety Report 15238138 (Version 2)
Quarter: 2018Q3

REPORT INFORMATION
  Report Type: Spontaneous
  Country: FR (occurrence: FR)
  Receive Date: 20180803
  Receipt Date: 20180926
  Transmission Date: 20181010
  Serious: Yes (Hospitalization, Other)
  Sender: FDA-Public Use
  Company Number: FR-MYLANLABS-2018M1057268

PATIENT
  Age: 63 Year
  Sex: Male
  Weight: 84 kg

DRUGS (3)
  1. FLUOROURACILE [Suspect]
     Active Substance: FLUOROURACIL
     Indication: ADENOCARCINOMA OF COLON
     Dosage: IDEA FOLFOX 6 DU 28/07/2011 AU 06/10/2011 PUIS FOLFOX DU 02/07/2014 AU 02/10/2014
     Route: 041
  2. OXALIPLATIN. [Suspect]
     Active Substance: OXALIPLATIN
     Indication: ADENOCARCINOMA OF COLON
     Dosage: IDEA FOLFOX 6 DU 28/07/2011 AU 06/10/2011 PUIS FOLFOX DU 02/07/2014 AU 02/10/2014
     Route: 041
  3. AVASTIN [Concomitant]
     Active Substance: BEVACIZUMAB
     Indication: ADENOCARCINOMA OF COLON
     Dosage: 425 MG, CYCLE, 7 CYCLES
     Route: 041
     Dates: start: 20140702, end: 20141016

REACTIONS (1)
  - Acute myeloid leukaemia [Not Recovered/Not Resolved]

NARRATIVE: CASE EVENT DATE: 20180406
